FAERS Safety Report 24360754 (Version 5)
Quarter: 2025Q1

REPORT INFORMATION
  Report Type: Spontaneous
  Country: JP (occurrence: JP)
  Receive Date: 20240925
  Receipt Date: 20250127
  Transmission Date: 20250408
  Serious: Yes (Hospitalization, Other)
  Sender: BOEHRINGER INGELHEIM
  Company Number: JP-NBI-2024-BI-053294

PATIENT
  Age: 65 Year
  Sex: Female
  Weight: 52 kg

DRUGS (40)
  1. OFEV [Suspect]
     Active Substance: NINTEDANIB
     Indication: Interstitial lung disease
  2. OFEV [Suspect]
     Active Substance: NINTEDANIB
     Indication: Systemic scleroderma
     Dates: start: 202207, end: 20221214
  3. OFEV [Suspect]
     Active Substance: NINTEDANIB
     Dates: start: 20221215, end: 20230116
  4. OFEV [Suspect]
     Active Substance: NINTEDANIB
  5. OFEV [Suspect]
     Active Substance: NINTEDANIB
     Dates: start: 20230525, end: 20231220
  6. OFEV [Suspect]
     Active Substance: NINTEDANIB
     Dates: start: 20231221, end: 20240612
  7. OFEV [Suspect]
     Active Substance: NINTEDANIB
     Dates: start: 20240613, end: 20240826
  8. OFEV [Suspect]
     Active Substance: NINTEDANIB
     Dates: start: 20240831, end: 20240930
  9. OFEV [Suspect]
     Active Substance: NINTEDANIB
     Dates: start: 20241015, end: 20241125
  10. OFEV [Suspect]
     Active Substance: NINTEDANIB
  11. ICOSAPENT [Suspect]
     Active Substance: ICOSAPENT
     Indication: Product used for unknown indication
  12. MIYA-BM [Concomitant]
     Active Substance: CLOSTRIDIUM BUTYRICUM SPORES STRAIN M-55
     Indication: Product used for unknown indication
  13. VONOPRAZAN FUMARATE [Concomitant]
     Active Substance: VONOPRAZAN FUMARATE
     Indication: Product used for unknown indication
  14. BIO-THREE [Concomitant]
     Active Substance: HERBALS
     Indication: Product used for unknown indication
  15. JUVELA [Concomitant]
     Active Substance: .ALPHA.-TOCOPHEROL\RETINOL
     Indication: Product used for unknown indication
  16. LANSOPRAZOLE [Concomitant]
     Active Substance: LANSOPRAZOLE
     Indication: Product used for unknown indication
  17. PREDONINE [Concomitant]
     Active Substance: PREDNISOLONE
     Indication: Product used for unknown indication
  18. ACTONEL [Concomitant]
     Active Substance: RISEDRONATE SODIUM
     Indication: Product used for unknown indication
  19. ELDECALCITOL [Concomitant]
     Active Substance: ELDECALCITOL
     Indication: Product used for unknown indication
  20. SULFAMETHOXAZOLE\TRIMETHOPRIM [Concomitant]
     Active Substance: SULFAMETHOXAZOLE\TRIMETHOPRIM
     Indication: Product used for unknown indication
  21. REVATIO [Concomitant]
     Active Substance: SILDENAFIL CITRATE
     Indication: Product used for unknown indication
  22. ELDECALCITOL [Concomitant]
     Active Substance: ELDECALCITOL
  23. TOCOPHERYL NICOTINATE, D-.ALPHA. [Concomitant]
     Active Substance: TOCOPHERYL NICOTINATE, D-.ALPHA.
  24. ICOSAPENT ETHYL [Concomitant]
     Active Substance: ICOSAPENT ETHYL
  25. LOPEMIN [Concomitant]
     Indication: Diarrhoea
  26. CALONAL [Concomitant]
     Active Substance: ACETAMINOPHEN
     Indication: Headache
  27. CALCIUM POLYCARBOPHIL [Concomitant]
     Active Substance: CALCIUM POLYCARBOPHIL
  28. BIFIDOBACTERIUM SPP. [Concomitant]
     Active Substance: BIFIDOBACTERIUM SPP.
  29. ZOLPIDEM TARTRATE [Concomitant]
     Active Substance: ZOLPIDEM TARTRATE
  30. HYALURONATE SODIUM [Concomitant]
     Active Substance: HYALURONATE SODIUM
  31. HEPARINOID [Concomitant]
  32. EPINASTINE [Concomitant]
     Active Substance: EPINASTINE
  33. HYTHIOL [Concomitant]
  34. BIFUROXIN [Concomitant]
  35. PETROLATUM [Concomitant]
     Active Substance: PETROLATUM
  36. ROZEX (METRONIDAZOLE) [Concomitant]
     Active Substance: METRONIDAZOLE
  37. CLINDAMYCIN PHOSPHATE [Concomitant]
     Active Substance: CLINDAMYCIN PHOSPHATE
  38. UREA [Concomitant]
     Active Substance: UREA
  39. CELLCEPT [Concomitant]
     Active Substance: MYCOPHENOLATE MOFETIL
     Dates: start: 20241015, end: 20241030
  40. CELLCEPT [Concomitant]
     Active Substance: MYCOPHENOLATE MOFETIL

REACTIONS (7)
  - Lower gastrointestinal haemorrhage [Recovering/Resolving]
  - Coagulation factor decreased [Recovering/Resolving]
  - Lower gastrointestinal haemorrhage [Recovering/Resolving]
  - Diverticulum intestinal [Recovering/Resolving]
  - Gastrointestinal mucosal exfoliation [Recovering/Resolving]
  - Haematochezia [Not Recovered/Not Resolved]
  - Respiratory disorder [Unknown]

NARRATIVE: CASE EVENT DATE: 20240826
